FAERS Safety Report 10590588 (Version 1)
Quarter: 2014Q4

REPORT INFORMATION
  Report Type: Spontaneous
  Country: US (occurrence: US)
  Receive Date: 20141118
  Receipt Date: 20141118
  Transmission Date: 20150529
  Serious: No
  Sender: FDA-Public Use
  Company Number: US-009507513-1411USA002057

PATIENT
  Sex: Female

DRUGS (1)
  1. FOSAMAX [Suspect]
     Active Substance: ALENDRONATE SODIUM
     Dosage: 70 MG, QD, ONE 70 MG DOSE OF FOSSAMAX TAKEN EVERYDAY FOR 12 DAYS
     Route: 048

REACTIONS (2)
  - No adverse event [Unknown]
  - Overdose [Unknown]
